FAERS Safety Report 15702508 (Version 2)
Quarter: 2020Q3

REPORT INFORMATION
  Report Type: Spontaneous
  Country: GB (occurrence: GB)
  Receive Date: 20181210
  Receipt Date: 20200709
  Transmission Date: 20201102
  Serious: Yes (Hospitalization, Other)
  Sender: FDA-Public Use
  Company Number: GB-BAUSCH-BL-2018-033918

PATIENT
  Age: 75 Year
  Sex: Male

DRUGS (4)
  1. RASAGILINE. [Suspect]
     Active Substance: RASAGILINE
     Indication: PARKINSON^S DISEASE
     Route: 065
  2. ATROPINE. [Suspect]
     Active Substance: ATROPINE
     Indication: DROOLING
     Route: 060
  3. STALEVO [Suspect]
     Active Substance: CARBIDOPA\ENTACAPONE\LEVODOPA
     Indication: PARKINSON^S DISEASE
     Dosage: 100MG/25MG/200MG ONE TABLET THREE TIMES A DAY
     Route: 065
  4. PRAMIPEXOLE. [Suspect]
     Active Substance: PRAMIPEXOLE
     Indication: PARKINSON^S DISEASE
     Dosage: MODIFIED RELEASE (DOPAMINE AGONIST)
     Route: 065

REACTIONS (8)
  - Dysarthria [Recovered/Resolved]
  - Off label use [Recovered/Resolved]
  - Fall [Recovered/Resolved]
  - Gait disturbance [Recovered/Resolved]
  - Condition aggravated [Recovered/Resolved]
  - Road traffic accident [Recovered/Resolved]
  - Psychotic disorder [Recovered/Resolved]
  - Delirium [Recovered/Resolved]
